FAERS Safety Report 7024169-8 (Version None)
Quarter: 2010Q4

REPORT INFORMATION
  Report Type: 
  Country: None (occurrence: None)
  Receive Date: 20101001
  Receipt Date: 20100927
  Transmission Date: 20110411
  Serious: Yes (Death, Life-Threatening, Hospitalization)
  Sender: FDA-Public Use
  Company Number: JP-JNJFOC-20100807387

PATIENT
  Sex: Female
  Weight: 57 kg

DRUGS (33)
  1. DUROTEP MT [Suspect]
     Indication: PERINEAL PAIN
     Route: 062
  2. DUROTEP MT [Suspect]
     Indication: SPINAL COLUMN STENOSIS
     Route: 062
  3. DUROTEP MT [Suspect]
     Indication: CANCER PAIN
     Route: 062
  4. ONEALFA [Concomitant]
     Indication: PRODUCT USED FOR UNKNOWN INDICATION
     Route: 048
  5. CODEINE PHOSPHATE [Concomitant]
     Indication: CANCER PAIN
     Route: 048
  6. CODEINE PHOSPHATE [Concomitant]
     Route: 048
  7. CODEINE PHOSPHATE [Concomitant]
     Route: 048
  8. CODEINE PHOSPHATE [Concomitant]
     Indication: SPINAL COLUMN STENOSIS
     Route: 048
  9. CODEINE PHOSPHATE [Concomitant]
     Route: 048
  10. CODEINE PHOSPHATE [Concomitant]
     Route: 048
  11. CODEINE PHOSPHATE [Concomitant]
     Route: 048
  12. CODEINE PHOSPHATE [Concomitant]
     Route: 048
  13. CODEINE PHOSPHATE [Concomitant]
     Indication: PERINEAL PAIN
     Route: 048
  14. CODEINE PHOSPHATE [Concomitant]
     Route: 048
  15. CODEINE PHOSPHATE [Concomitant]
     Route: 048
  16. CODEINE PHOSPHATE [Concomitant]
     Route: 048
  17. CODEINE PHOSPHATE [Concomitant]
     Route: 048
  18. PAXIL [Concomitant]
     Indication: PRODUCT USED FOR UNKNOWN INDICATION
     Route: 048
  19. DEPAS [Concomitant]
     Indication: PRODUCT USED FOR UNKNOWN INDICATION
     Route: 048
  20. RISPERDAL [Concomitant]
     Indication: PRODUCT USED FOR UNKNOWN INDICATION
     Route: 048
  21. PURSENNID [Concomitant]
     Indication: CONSTIPATION
     Route: 048
  22. MAGNESIUM OXIDE [Concomitant]
     Indication: PRODUCT USED FOR UNKNOWN INDICATION
     Route: 048
  23. METHYCOBAL [Concomitant]
     Indication: PRODUCT USED FOR UNKNOWN INDICATION
     Route: 048
  24. TAKEPRON [Concomitant]
     Indication: PRODUCT USED FOR UNKNOWN INDICATION
     Route: 048
  25. SHAKUYAKU-K ANZO-TO [Concomitant]
     Indication: PRODUCT USED FOR UNKNOWN INDICATION
     Route: 048
  26. DICLOFENAC SODIUM [Concomitant]
     Indication: PRODUCT USED FOR UNKNOWN INDICATION
     Route: 048
  27. MUCOSTA [Concomitant]
     Indication: PRODUCT USED FOR UNKNOWN INDICATION
     Route: 048
  28. BONALON [Concomitant]
     Indication: PRODUCT USED FOR UNKNOWN INDICATION
     Route: 048
  29. LEXOTAN [Concomitant]
     Indication: PRODUCT USED FOR UNKNOWN INDICATION
     Route: 048
  30. GOREISAN [Concomitant]
     Indication: SPINAL COLUMN STENOSIS
     Route: 048
  31. GOREISAN [Concomitant]
     Indication: PERINEAL PAIN
     Route: 048
  32. GOREISAN [Concomitant]
     Indication: OEDEMA
     Route: 048
  33. ANPEC (MORPHINE HYDROCHLORIDE) [Concomitant]
     Route: 054

REACTIONS (19)
  - ALTERED STATE OF CONSCIOUSNESS [None]
  - ATELECTASIS [None]
  - BLOOD PRESSURE DECREASED [None]
  - CARDIAC HYPERTROPHY [None]
  - EATING DISORDER [None]
  - EMPHYSEMA [None]
  - GAIT DISTURBANCE [None]
  - NARCOTIC INTOXICATION [None]
  - OVERDOSE [None]
  - OXYGEN SATURATION DECREASED [None]
  - PAIN [None]
  - PAIN IN EXTREMITY [None]
  - PNEUMONIA ASPIRATION [None]
  - PULMONARY INFARCTION [None]
  - RESPIRATORY DEPRESSION [None]
  - RESTLESSNESS [None]
  - SUDDEN DEATH [None]
  - URINARY TRACT INFECTION [None]
  - VOMITING [None]
